FAERS Safety Report 23626873 (Version 2)
Quarter: 2024Q1

REPORT INFORMATION
  Report Type: Spontaneous
  Country: FR (occurrence: FR)
  Receive Date: 20240313
  Receipt Date: 20240314
  Transmission Date: 20240410
  Serious: No
  Sender: FDA-Public Use
  Company Number: None

PATIENT
  Age: 89 Year
  Sex: Male
  Weight: 87 kg

DRUGS (5)
  1. ALDACTONE [Suspect]
     Active Substance: SPIRONOLACTONE
     Indication: Oedema due to cardiac disease
     Dosage: 12.5 MG, 1X/DAY
     Route: 048
     Dates: start: 20240214, end: 20240216
  2. ELIQUIS [Suspect]
     Active Substance: APIXABAN
     Indication: Atrial fibrillation
     Dosage: 2.5 MG, 2X/DAY
     Route: 048
     Dates: start: 20240209, end: 20240222
  3. HYDROCHLOROTHIAZIDE [Suspect]
     Active Substance: HYDROCHLOROTHIAZIDE
     Indication: Oedema due to cardiac disease
     Dosage: 25 MG, 1X/DAY
     Route: 048
     Dates: start: 20240214, end: 20240222
  4. DAPAGLIFLOZIN [Suspect]
     Active Substance: DAPAGLIFLOZIN
     Indication: Cardiac failure
     Dosage: 10 MG, 1X/DAY
     Route: 048
     Dates: start: 20240212, end: 20240223
  5. PRISTINAMYCIN [Suspect]
     Active Substance: PRISTINAMYCIN
     Indication: Erysipelas
     Dosage: 1 G, 3X/DAY
     Route: 048
     Dates: start: 20240215, end: 20240220

REACTIONS (1)
  - Vascular purpura [Not Recovered/Not Resolved]

NARRATIVE: CASE EVENT DATE: 20240217
